FAERS Safety Report 10447670 (Version 1)
Quarter: 2014Q3

REPORT INFORMATION
  Report Type: Spontaneous
  Country: US (occurrence: None)
  Receive Date: 20140910
  Receipt Date: 20140910
  Transmission Date: 20150326
  Serious: Yes (Hospitalization)
  Sender: FDA-Public Use
  Company Number: None

PATIENT
  Age: 55 Year
  Sex: Female
  Weight: 111.8 kg

DRUGS (1)
  1. INTRON A [Suspect]
     Active Substance: INTERFERON ALFA-2B
     Dosage: 435 MU
     Dates: end: 20130301

REACTIONS (5)
  - Erythema [None]
  - Pyrexia [None]
  - Swelling [None]
  - Pain [None]
  - Cellulitis [None]

NARRATIVE: CASE EVENT DATE: 20130306
